FAERS Safety Report 13641032 (Version 1)
Quarter: 2017Q2

REPORT INFORMATION
  Report Type: Spontaneous
  Country: JP (occurrence: JP)
  Receive Date: 20170612
  Receipt Date: 20170612
  Transmission Date: 20170830
  Serious: Yes (Hospitalization, Other)
  Sender: FDA-Public Use
  Company Number: JP-009507513-1705JPN000935J

PATIENT
  Age: 72 Year
  Sex: Female
  Weight: 53 kg

DRUGS (1)
  1. KEYTRUDA [Suspect]
     Active Substance: PEMBROLIZUMAB
     Indication: SUPERFICIAL SPREADING MELANOMA STAGE UNSPECIFIED
     Dosage: 2 MG/KG, Q3W
     Route: 041
     Dates: start: 20170418, end: 20170602

REACTIONS (1)
  - Renal impairment [Not Recovered/Not Resolved]

NARRATIVE: CASE EVENT DATE: 20170508
